FAERS Safety Report 9821986 (Version 1)
Quarter: 2014Q1

REPORT INFORMATION
  Report Type: Spontaneous
  Country: FR (occurrence: FR)
  Receive Date: 20140116
  Receipt Date: 20140116
  Transmission Date: 20141002
  Serious: Yes (Hospitalization)
  Sender: FDA-Public Use
  Company Number: FR-US-EMD SERONO, INC.-7262024

PATIENT
  Age: 24 Year
  Sex: Female

DRUGS (8)
  1. GONAL-F [Suspect]
     Indication: IN VITRO FERTILISATION
     Dosage: SOLUTION FOR INJECTION IN PREFILLED PEN
     Route: 058
     Dates: start: 20130321, end: 20130326
  2. GONAL-F [Suspect]
     Dosage: SOLUTION FOR INJECTION IN PREFILLED PEN
     Route: 058
     Dates: start: 20130327, end: 20130330
  3. GONAL-F [Suspect]
     Dosage: SOLUTION FOR INJECTION IN PREFILLED PEN
     Route: 058
     Dates: start: 20130331
  4. GONAL-F [Suspect]
     Dosage: SOLUTION FOR INJECTION IN PREFILLED PEN
     Route: 058
     Dates: start: 20130401
  5. GONAL-F [Suspect]
     Dosage: SOLUTION FOR INJECTION IN PREFILLED PEN
     Route: 058
     Dates: start: 20130402
  6. DECAPEPTYL /00486501/ [Suspect]
     Indication: IN VITRO FERTILISATION
     Dosage: POWDER AND SOLVENT FOR SUSPENSION FOR INJECTION
     Dates: start: 201303
  7. GONADOTROPHINE-ENDO [Suspect]
     Indication: IN VITRO FERTILISATION
     Dosage: LYOPHILISATE AND SOLUTION FOR INTRAMUSCULAR PARENTERAL USE
     Dates: start: 20130403
  8. UTROGESTAN [Suspect]
     Indication: IN VITRO FERTILISATION
     Dosage: ORAL SOFT CAPSULE OR VAGINAL
     Route: 067
     Dates: start: 20130405

REACTIONS (3)
  - Hyponatraemia [Recovered/Resolved]
  - Ovarian hyperstimulation syndrome [Recovered/Resolved]
  - Ascites [Recovered/Resolved]
